FAERS Safety Report 7711886-7 (Version None)
Quarter: 2011Q3

REPORT INFORMATION
  Report Type: 
  Country: None (occurrence: None)
  Receive Date: 20110822
  Receipt Date: 20110811
  Transmission Date: 20111222
  Serious: Yes (Other)
  Sender: FDA-Public Use
  Company Number: TPA2011A03816

PATIENT
  Age: 76 Year
  Sex: Male
  Weight: 92.9874 kg

DRUGS (3)
  1. METFORMIN [Concomitant]
  2. ACTOS [Suspect]
     Indication: TYPE 2 DIABETES MELLITUS
     Dosage: 1 IN 1 D, PER ORAL; 30 MG, 45 MG
     Route: 048
     Dates: start: 20000101, end: 20110701
  3. DEFLAZACORT [Concomitant]

REACTIONS (2)
  - BLADDER CANCER [None]
  - PYURIA [None]
